FAERS Safety Report 13142777 (Version 1)
Quarter: 2017Q1

REPORT INFORMATION
  Report Type: Spontaneous
  Country: US (occurrence: US)
  Receive Date: 20170123
  Receipt Date: 20170123
  Transmission Date: 20170428
  Serious: No
  Sender: FDA-Public Use
  Company Number: US-ALLERGAN-1656154US

PATIENT
  Age: 92 Year
  Sex: Female

DRUGS (2)
  1. GELNIQUE [Suspect]
     Active Substance: OXYBUTYNIN
     Indication: URINARY INCONTINENCE
     Dosage: 3 PUMPS PER DOSE
     Route: 061
     Dates: start: 201508
  2. GELNIQUE [Suspect]
     Active Substance: OXYBUTYNIN
     Dosage: 3 PUMPS PER DOSE
     Route: 061
     Dates: start: 201508

REACTIONS (1)
  - Rash pruritic [Not Recovered/Not Resolved]

NARRATIVE: CASE EVENT DATE: 201512
